FAERS Safety Report 17528760 (Version 1)
Quarter: 2020Q1

REPORT INFORMATION
  Report Type: Spontaneous
  Country: HR (occurrence: HR)
  Receive Date: 20200311
  Receipt Date: 20200311
  Transmission Date: 20200409
  Serious: Yes (Other)
  Sender: FDA-Public Use
  Company Number: HR-PFIZER INC-2020106782

PATIENT
  Age: 77 Year
  Sex: Female

DRUGS (7)
  1. SORTIS [Suspect]
     Active Substance: ATORVASTATIN
     Dosage: UNK
  2. AMLODIPINE BESILATE [Suspect]
     Active Substance: AMLODIPINE BESYLATE
     Dosage: UNK
  3. PREDUCTAL [Suspect]
     Active Substance: TRIMETAZIDINE DIHYDROCHLORIDE
     Dosage: UNK
     Route: 065
  4. VALSACOR [Suspect]
     Active Substance: VALSARTAN
     Dosage: UNK
     Route: 065
  5. EUTHYROX [Suspect]
     Active Substance: LEVOTHYROXINE SODIUM
     Indication: HYPOTHYROIDISM
     Dosage: 50 MICROGRAM, QD
     Route: 048
     Dates: start: 20200110
  6. ZALDIAR [Suspect]
     Active Substance: ACETAMINOPHEN\TRAMADOL HYDROCHLORIDE
     Indication: PAIN
     Dosage: UNK
     Route: 065
  7. CONTROLOC [Suspect]
     Active Substance: PANTOPRAZOLE SODIUM
     Dosage: UNK

REACTIONS (11)
  - Bronchitis [Recovering/Resolving]
  - Hand fracture [Recovering/Resolving]
  - Malaise [Recovering/Resolving]
  - Nausea [Recovering/Resolving]
  - Asthma [Recovering/Resolving]
  - Fatigue [Recovering/Resolving]
  - Dyspnoea [Recovering/Resolving]
  - General physical health deterioration [Unknown]
  - Diarrhoea [Recovering/Resolving]
  - Fall [Recovering/Resolving]
  - Asthenia [Recovering/Resolving]

NARRATIVE: CASE EVENT DATE: 2020
